FAERS Safety Report 24899243 (Version 1)
Quarter: 2025Q1

REPORT INFORMATION
  Report Type: Spontaneous
  Country: CN (occurrence: CN)
  Receive Date: 20250129
  Receipt Date: 20250129
  Transmission Date: 20250408
  Serious: Yes (Life-Threatening, Hospitalization, Other)
  Sender: BAYER HEALTHCARE PHARMACEUTICALS INC.
  Company Number: CN-BAYER-2025A009962

PATIENT
  Age: 88 Year
  Sex: Male
  Weight: 50 kg

DRUGS (8)
  1. ASPIRIN [Suspect]
     Active Substance: ASPIRIN
     Indication: Arteriosclerosis coronary artery
     Dosage: 100 MG, QD
     Route: 048
     Dates: start: 20151001, end: 20241116
  2. GLUCOBAY [Suspect]
     Active Substance: ACARBOSE
     Indication: Type 2 diabetes mellitus
     Dosage: 50 MG, TID
     Route: 048
     Dates: start: 20151001, end: 20241116
  3. ISOSORBIDE MONONITRATE [Concomitant]
     Active Substance: ISOSORBIDE MONONITRATE
     Indication: Arteriosclerosis coronary artery
     Dosage: 40 MG, QD
     Route: 048
     Dates: start: 20150501, end: 20241116
  4. IRBESARTAN [Concomitant]
     Active Substance: IRBESARTAN
     Dosage: 150 MG, QD
     Route: 048
     Dates: start: 20151001, end: 20241116
  5. BISOPROLOL FUMARATE [Concomitant]
     Active Substance: BISOPROLOL FUMARATE
     Indication: Arteriosclerosis coronary artery
     Dosage: 5 MG, QD
     Route: 048
     Dates: start: 20151001, end: 20241116
  6. ROSUVASTATIN CALCIUM [Concomitant]
     Active Substance: ROSUVASTATIN CALCIUM
     Indication: Arteriosclerosis coronary artery
     Dosage: 5 MG, QD
     Route: 048
     Dates: start: 20151001, end: 20241116
  7. TRIMETAZIDINE DIHYDROCHLORIDE [Concomitant]
     Active Substance: TRIMETAZIDINE DIHYDROCHLORIDE
     Indication: Arteriosclerosis coronary artery
     Dosage: 20 MG, TID
     Route: 048
     Dates: start: 20151001, end: 20241116
  8. SIMVASTATIN [Concomitant]
     Active Substance: SIMVASTATIN
     Indication: Arteriosclerosis coronary artery
     Dosage: 20 MG, QD
     Route: 048
     Dates: start: 20151001, end: 20241116

REACTIONS (9)
  - Acute myocardial infarction [None]
  - Cardiac arrest [Recovered/Resolved]
  - Chest discomfort [None]
  - Tachypnoea [None]
  - Loss of consciousness [None]
  - Unresponsive to stimuli [None]
  - Stress ulcer [None]
  - Upper gastrointestinal haemorrhage [Recovering/Resolving]
  - Coagulopathy [Recovering/Resolving]

NARRATIVE: CASE EVENT DATE: 20241115
